FAERS Safety Report 8359772-6 (Version None)
Quarter: 2012Q2

REPORT INFORMATION
  Report Type: 
  Country: None (occurrence: None)
  Receive Date: 20120515
  Receipt Date: 20120508
  Transmission Date: 20120825
  Serious: Yes (Hospitalization)
  Sender: FDA-Public Use
  Company Number: PHHY2012BR040604

PATIENT
  Sex: Female

DRUGS (4)
  1. SIMVASTATIN [Concomitant]
     Dosage: 2 DF, AT NIGHT
     Dates: start: 20080101
  2. DIOVAN HCT [Suspect]
     Indication: CEREBROVASCULAR ACCIDENT
     Dosage: 1 DF (320 MG OF VALSARTAN/ UNK DOSE OF HYDROCHLOROTHIAZIDE), UNK
  3. NEBIVOLOL HCL [Concomitant]
     Indication: HYPERTENSION
     Dosage: 1 DF, UNK
     Dates: start: 20080101
  4. ASPIRIN [Concomitant]
     Indication: ISCHAEMIC HEART DISEASE PROPHYLAXIS
     Dosage: 1 DF, DAILY
     Dates: start: 20080101

REACTIONS (3)
  - OEDEMA PERIPHERAL [None]
  - HYPERTENSION [None]
  - ACCIDENT [None]
